FAERS Safety Report 16353985 (Version 9)
Quarter: 2019Q4

REPORT INFORMATION
  Report Type: Spontaneous
  Country: TW (occurrence: TW)
  Receive Date: 20190524
  Receipt Date: 20191120
  Transmission Date: 20200122
  Serious: Yes (Hospitalization, Other)
  Sender: FDA-Public Use
  Company Number: TW-PFIZER INC-2019183212

PATIENT
  Age: 70 Year
  Sex: Female

DRUGS (3)
  1. TORISEL [Suspect]
     Active Substance: TEMSIROLIMUS
     Dosage: 25 MG, EVERY TWO WEEKS
     Route: 042
     Dates: start: 20191029
  2. TORISEL [Suspect]
     Active Substance: TEMSIROLIMUS
     Indication: RENAL CELL CARCINOMA
     Dosage: 25 MG, WEEKLY
     Route: 042
     Dates: start: 20190419, end: 20190427
  3. TORISEL [Suspect]
     Active Substance: TEMSIROLIMUS
     Dosage: 25 MG, EVERY TWO WEEKS
     Route: 042
     Dates: start: 20190517, end: 20191013

REACTIONS (20)
  - Platelet count decreased [Not Recovered/Not Resolved]
  - Hypertriglyceridaemia [Not Recovered/Not Resolved]
  - Urinary tract infection [Recovered/Resolved]
  - White blood cell count decreased [Not Recovered/Not Resolved]
  - Anaemia [Not Recovered/Not Resolved]
  - Blood alkaline phosphatase increased [Not Recovered/Not Resolved]
  - Chest discomfort [Recovered/Resolved]
  - Blood creatinine abnormal [Not Recovered/Not Resolved]
  - Blood cholesterol increased [Recovered/Resolved]
  - Hyperkalaemia [Recovered/Resolved]
  - Cough [Not Recovered/Not Resolved]
  - Blood cholesterol decreased [Recovered/Resolved]
  - Hyperuricaemia [Not Recovered/Not Resolved]
  - Alanine aminotransferase increased [Recovered/Resolved]
  - Hypomagnesaemia [Recovered/Resolved]
  - Pyrexia [Recovered/Resolved]
  - Blood urea abnormal [Not Recovered/Not Resolved]
  - Blood lactate dehydrogenase increased [Not Recovered/Not Resolved]
  - Pruritus [Not Recovered/Not Resolved]
  - Hyperglycaemia [Not Recovered/Not Resolved]

NARRATIVE: CASE EVENT DATE: 2019
